FAERS Safety Report 9819024 (Version 1)
Quarter: 2014Q1

REPORT INFORMATION
  Report Type: Spontaneous
  Country: US (occurrence: None)
  Receive Date: 20140114
  Receipt Date: 20140114
  Transmission Date: 20141002
  Serious: Yes (Life-Threatening, Hospitalization)
  Sender: FDA-Public Use
  Company Number: None

PATIENT
  Age: 56 None
  Sex: Male
  Weight: 80.3 kg

DRUGS (2)
  1. TRASTUZUMAB [Suspect]
     Indication: OESOPHAGEAL CARCINOMA
     Route: 058
     Dates: start: 20131209, end: 20131209
  2. PACLITAXEL [Suspect]
     Dates: start: 20131209, end: 20131209

REACTIONS (17)
  - Nausea [None]
  - Mental status changes [None]
  - Dyspnoea [None]
  - Tremor [None]
  - Anxiety [None]
  - Respiratory distress [None]
  - Cardio-respiratory arrest [None]
  - Hypersensitivity [None]
  - Tachycardia [None]
  - Agitation [None]
  - Dyspnoea [None]
  - Tachypnoea [None]
  - Oxygen saturation decreased [None]
  - Lip swelling [None]
  - Confusional state [None]
  - Anaphylactic reaction [None]
  - Respiratory depression [None]
